FAERS Safety Report 13347326 (Version 1)
Quarter: 2017Q1

REPORT INFORMATION
  Report Type: Spontaneous
  Country: TR (occurrence: TR)
  Receive Date: 20170317
  Receipt Date: 20170317
  Transmission Date: 20170428
  Serious: Yes (Death, Hospitalization)
  Sender: FDA-Public Use
  Company Number: TR-TAKEDA-2017TUS005785

PATIENT
  Age: 27 Month
  Sex: Female
  Weight: 10.8 kg

DRUGS (1)
  1. COLCHICINE. [Suspect]
     Active Substance: COLCHICINE
     Indication: PRODUCT USED FOR UNKNOWN INDICATION
     Dosage: 10 MG, UNK
     Route: 065

REACTIONS (3)
  - Toxicity to various agents [Fatal]
  - Drug administered to patient of inappropriate age [Unknown]
  - Overdose [Unknown]
